FAERS Safety Report 14230034 (Version 2)
Quarter: 2018Q2

REPORT INFORMATION
  Report Type: Spontaneous
  Country: US (occurrence: US)
  Receive Date: 20171128
  Receipt Date: 20180426
  Transmission Date: 20180711
  Serious: Yes (Death, Other)
  Sender: FDA-Public Use
  Company Number: US-JNJFOC-20171130858

PATIENT
  Age: 51 Year
  Sex: Male

DRUGS (1)
  1. XARELTO [Suspect]
     Active Substance: RIVAROXABAN
     Indication: PRODUCT USED FOR UNKNOWN INDICATION
     Route: 048

REACTIONS (6)
  - Atrial fibrillation [Fatal]
  - Hepatic enzyme increased [Unknown]
  - Cardiac failure acute [Fatal]
  - Abdominal pain [Unknown]
  - Ischaemic cardiomyopathy [Fatal]
  - Coronary artery occlusion [Fatal]

NARRATIVE: CASE EVENT DATE: 201710
